FAERS Safety Report 4686117-5 (Version None)
Quarter: 2005Q2

REPORT INFORMATION
  Report Type: 
  Country: None (occurrence: None)
  Receive Date: 20050606
  Receipt Date: 20050523
  Transmission Date: 20051028
  Serious: Yes (Death)
  Sender: FDA-Public Use
  Company Number: 02100-JPN-05-0238

PATIENT
  Age: 79 Year
  Sex: Male

DRUGS (5)
  1. CILOSTAZOL [Suspect]
     Dosage: ORAL
     Route: 048
  2. OMEPRAZOLE [Concomitant]
     Dosage: ORAL
     Route: 048
  3. ASPIRIN /DIALUMINATE [Concomitant]
  4. NICORDANDIL [Concomitant]
  5. ASPIRIN/DIALUMINATE [Concomitant]
     Indication: PREMEDICATION

REACTIONS (1)
  - INTERSTITIAL LUNG DISEASE [None]
